FAERS Safety Report 8969101 (Version 1)
Quarter: 2012Q4

REPORT INFORMATION
  Report Type: Spontaneous
  Country: US (occurrence: None)
  Receive Date: 20121214
  Receipt Date: 20121214
  Transmission Date: 20130627
  Serious: No
  Sender: FDA-Public Use
  Company Number: None

PATIENT

DRUGS (1)
  1. ZOLEDRONIC ACID [Suspect]

REACTIONS (9)
  - Migraine [None]
  - Bone pain [None]
  - Dizziness [None]
  - Chest pain [None]
  - Myalgia [None]
  - Headache [None]
  - Dysphagia [None]
  - No therapeutic response [None]
  - Gastrointestinal pain [None]
